FAERS Safety Report 14687235 (Version 2)
Quarter: 2018Q2

REPORT INFORMATION
  Report Type: Report from Study
  Country: US (occurrence: US)
  Receive Date: 20180328
  Receipt Date: 20180429
  Transmission Date: 20180711
  Serious: Yes (Hospitalization, Other)
  Sender: FDA-Public Use
  Company Number: PHEH2018US010888

PATIENT
  Age: 23 Year
  Sex: Male
  Weight: 98.4 kg

DRUGS (2)
  1. KYMRIAH [Suspect]
     Active Substance: TISAGENLECLEUCEL
     Indication: ACUTE LYMPHOCYTIC LEUKAEMIA
     Dosage: .4X10^6 CART VIABLE CELLS/ KG, ONCE/SINGLE
     Route: 042
     Dates: start: 20180305
  2. KYMRIAH [Suspect]
     Active Substance: TISAGENLECLEUCEL
     Dosage: UNK

REACTIONS (7)
  - Neurotoxicity [Recovered/Resolved]
  - Mania [Unknown]
  - Disturbance in attention [Unknown]
  - Pyrexia [Unknown]
  - Encephalopathy [Unknown]
  - Cytokine release syndrome [Recovered/Resolved]
  - Cognitive disorder [Unknown]

NARRATIVE: CASE EVENT DATE: 20180312
